FAERS Safety Report 24684013 (Version 1)
Quarter: 2024Q4

REPORT INFORMATION
  Report Type: Spontaneous
  Country: US (occurrence: US)
  Receive Date: 20241202
  Receipt Date: 20241202
  Transmission Date: 20250115
  Serious: Yes (Life-Threatening, Hospitalization, Other)
  Sender: GLENMARK
  Company Number: US-MLMSERVICE-20241115-PI257818-00190-1

PATIENT

DRUGS (3)
  1. LAMOTRIGINE [Suspect]
     Active Substance: LAMOTRIGINE
     Indication: Product used for unknown indication
     Dosage: 6 GRAM, SINGLE (INTENTIONALLY INGESTED)
     Route: 048
  2. LURASIDONE [Concomitant]
     Active Substance: LURASIDONE
     Indication: Product used for unknown indication
     Dosage: UNK; INTENTIONALLY INGESTED UNKNOWN SMALL AMOUNTS
     Route: 048
  3. FLUOXETINE [Concomitant]
     Active Substance: FLUOXETINE HYDROCHLORIDE
     Indication: Product used for unknown indication
     Dosage: UNK; INTENTIONALLY INGESTED UNKNOWN SMALL AMOUNTS
     Route: 048

REACTIONS (7)
  - Hypotension [Recovering/Resolving]
  - Mental status changes [Recovered/Resolved]
  - Toxicity to various agents [Recovering/Resolving]
  - Generalised tonic-clonic seizure [Recovering/Resolving]
  - Headache [Recovering/Resolving]
  - Dizziness [Recovering/Resolving]
  - Intentional overdose [Unknown]
